FAERS Safety Report 13804625 (Version 1)
Quarter: 2017Q3

REPORT INFORMATION
  Report Type: Spontaneous
  Country: US (occurrence: US)
  Receive Date: 20170728
  Receipt Date: 20170728
  Transmission Date: 20171127
  Serious: Yes (Other)
  Sender: FDA-Public Use
  Company Number: US-ROCHE-1947518

PATIENT
  Age: 68 Year
  Sex: Female
  Weight: 59.02 kg

DRUGS (7)
  1. ACTEMRA [Suspect]
     Active Substance: TOCILIZUMAB
     Indication: VASCULITIS
  2. XELJANZ [Suspect]
     Active Substance: TOFACITINIB CITRATE
     Indication: RHEUMATOID ARTHRITIS
     Dosage: TAKEN AS NEEDED FOR 7 YEARS;ONGOING: YES
     Route: 048
     Dates: start: 201706
  3. ACTEMRA [Suspect]
     Active Substance: TOCILIZUMAB
     Indication: RHEUMATOID ARTHRITIS
     Dosage: ONGOING: NO
     Route: 058
     Dates: start: 201410, end: 20150110
  4. ACTEMRA [Suspect]
     Active Substance: TOCILIZUMAB
     Indication: VASCULITIS
  5. ACTEMRA [Suspect]
     Active Substance: TOCILIZUMAB
     Indication: RHEUMATOID ARTHRITIS
     Dosage: UNKNOWN
     Route: 042
     Dates: start: 20170208, end: 20170408
  6. XELJANZ [Suspect]
     Active Substance: TOFACITINIB CITRATE
     Indication: VASCULITIS
  7. PREDNISONE. [Concomitant]
     Active Substance: PREDNISONE
     Dosage: TAKEN AS NEEDED FOR 7 YEARS
     Route: 048

REACTIONS (27)
  - Grip strength decreased [Unknown]
  - Swelling [Unknown]
  - Nausea [Recovered/Resolved]
  - Swelling face [Unknown]
  - Deafness unilateral [Unknown]
  - Dizziness [Unknown]
  - Gastric disorder [Unknown]
  - Swollen tongue [Unknown]
  - Drug ineffective [Unknown]
  - Malaise [Recovered/Resolved]
  - Somnolence [Unknown]
  - Musculoskeletal pain [Unknown]
  - Immune system disorder [Unknown]
  - Fungal infection [Recovered/Resolved]
  - Pyrexia [Unknown]
  - Pain in extremity [Unknown]
  - Pharyngeal oedema [Unknown]
  - Tinnitus [Recovering/Resolving]
  - Rheumatoid arthritis [Not Recovered/Not Resolved]
  - Blood albumin abnormal [Unknown]
  - Bone pain [Recovered/Resolved]
  - Hypoacusis [Recovered/Resolved]
  - Chills [Unknown]
  - Arthralgia [Unknown]
  - Joint swelling [Recovered/Resolved]
  - Neuropathy peripheral [Unknown]
  - Malaise [Unknown]

NARRATIVE: CASE EVENT DATE: 2015
